FAERS Safety Report 4869113-4 (Version None)
Quarter: 2005Q4

REPORT INFORMATION
  Report Type: 
  Country: None (occurrence: None)
  Receive Date: 20051230
  Receipt Date: 20051220
  Transmission Date: 20060501
  Serious: Yes (Death, Other)
  Sender: FDA-Public Use
  Company Number: US-JNJFOC-20050903829

PATIENT
  Sex: Male

DRUGS (1)
  1. REMICADE [Suspect]
     Indication: CROHN'S DISEASE
     Route: 042

REACTIONS (6)
  - BRONCHOPULMONARY ASPERGILLOSIS [None]
  - CROHN'S DISEASE [None]
  - CYTOMEGALOVIRUS GASTROINTESTINAL INFECTION [None]
  - GASTROINTESTINAL HAEMORRHAGE [None]
  - RESPIRATORY FAILURE [None]
  - TUBERCULOSIS GASTROINTESTINAL [None]
